FAERS Safety Report 8879450 (Version 1)
Quarter: 2012Q4

REPORT INFORMATION
  Report Type: 
  Country: NO (occurrence: NO)
  Receive Date: 20121031
  Receipt Date: 20121031
  Transmission Date: 20130627
  Serious: Yes (Hospitalization)
  Sender: FDA-Public Use
  Company Number: NO-BAXTER-2012BAX021514

PATIENT
  Sex: Male

DRUGS (3)
  1. KIOVIG 100 MG/ML INFUSJONSV?SKE, OPPL?SNING [Suspect]
     Indication: CHRONIC LYMPHATIC LEUKEMIA
     Route: 065
  2. KIOVIG 100 MG/ML INFUSJONSV?SKE, OPPL?SNING [Suspect]
     Route: 065
  3. PARACET [Concomitant]
     Indication: DRUG USE FOR UNKNOWN INDICATION

REACTIONS (1)
  - Back pain [Unknown]
